FAERS Safety Report 21241913 (Version 3)
Quarter: 2023Q2

REPORT INFORMATION
  Report Type: Spontaneous
  Country: US (occurrence: US)
  Receive Date: 20220823
  Receipt Date: 20230406
  Transmission Date: 20230722
  Serious: Yes (Hospitalization, Other)
  Sender: FDA-Public Use
  Company Number: US-MLMSERVICE-20220805-3716167-1

PATIENT

DRUGS (11)
  1. CARBOPLATIN [Suspect]
     Active Substance: CARBOPLATIN
     Indication: Malignant central nervous system neoplasm
     Dosage: UNK, ONE CYCLE, BRIDGING THERAPY
     Route: 065
  2. CARBOPLATIN [Suspect]
     Active Substance: CARBOPLATIN
     Dosage: UNK, HIGH DOSE, HEAD START IV PROTOCOL
     Route: 042
  3. CYCLOPHOSPHAMIDE [Suspect]
     Active Substance: CYCLOPHOSPHAMIDE
     Indication: Malignant central nervous system neoplasm
     Dosage: UNK, METRONOMIC CHEMOTHERAPY
     Route: 048
  4. FENOFIBRATE [Suspect]
     Active Substance: FENOFIBRATE
     Indication: Malignant central nervous system neoplasm
     Dosage: UNK, DAILY, METRONOMIC CHEMOTHERAPY
     Route: 065
  5. CELECOXIB [Suspect]
     Active Substance: CELECOXIB
     Indication: Malignant central nervous system neoplasm
     Dosage: UNK, METRONOMIC CHEMOTHERAPY
     Route: 065
  6. ETOPOSIDE [Suspect]
     Active Substance: ETOPOSIDE
     Indication: Malignant central nervous system neoplasm
     Dosage: UNK, ONE CYCLE, BRIDGING THERAPY
     Route: 065
  7. ETOPOSIDE [Suspect]
     Active Substance: ETOPOSIDE
     Dosage: UNK, HIGH DOSE, HEAD START IV PROTOCOL
     Route: 042
  8. ETOPOSIDE [Suspect]
     Active Substance: ETOPOSIDE
     Dosage: UNK, METRONOMIC CHEMOTHERAPY
     Route: 065
  9. THIOTEPA [Suspect]
     Active Substance: THIOTEPA
     Indication: Malignant central nervous system neoplasm
     Dosage: UNK, HIGH DOSE, HEAD START IV PROTOCOL
     Route: 042
  10. IFOSFAMIDE [Suspect]
     Active Substance: IFOSFAMIDE
     Indication: Malignant central nervous system neoplasm
     Dosage: UNK, ONE CYCLE, BRIDGING THERAPY
     Route: 065
  11. THALIDOMIDE [Suspect]
     Active Substance: THALIDOMIDE
     Indication: Malignant central nervous system neoplasm
     Dosage: UNK, TWICE WEEKLY, METRONOMIC CHEMOTHERAPY
     Route: 065

REACTIONS (7)
  - Engraftment syndrome [Unknown]
  - Clostridium difficile colitis [Unknown]
  - Feeding disorder [Unknown]
  - Electrolyte depletion [Unknown]
  - Dehydration [Unknown]
  - Off label use [Unknown]
  - Product use in unapproved indication [Unknown]
